FAERS Safety Report 18993011 (Version 2)
Quarter: 2022Q1

REPORT INFORMATION
  Report Type: Spontaneous
  Country: US (occurrence: US)
  Receive Date: 20210310
  Receipt Date: 20220217
  Transmission Date: 20220423
  Serious: Yes (Hospitalization, Other)
  Sender: FDA-Public Use
  Company Number: US-GLAXOSMITHKLINE-US2021GSK060293

PATIENT
  Sex: Female

DRUGS (4)
  1. ZANTAC [Suspect]
     Active Substance: RANITIDINE HYDROCHLORIDE
     Indication: Product used for unknown indication
     Dosage: UNK
     Route: 065
     Dates: start: 2019
  2. RANITIDINE HYDROCHLORIDE [Suspect]
     Active Substance: RANITIDINE HYDROCHLORIDE
     Indication: Product used for unknown indication
     Dosage: UNK
     Route: 065
  3. ZANTAC [Suspect]
     Active Substance: RANITIDINE HYDROCHLORIDE
     Indication: Gastrooesophageal reflux disease
     Dosage: UNK, QD
     Route: 065
     Dates: start: 2004, end: 2019
  4. ZANTAC [Suspect]
     Active Substance: RANITIDINE HYDROCHLORIDE
     Indication: Dyspepsia

REACTIONS (25)
  - Proctitis [Unknown]
  - Anal squamous cell carcinoma [Unknown]
  - Rectal haemorrhage [Unknown]
  - Gastrointestinal haemorrhage [Unknown]
  - Gastrooesophageal reflux disease [Unknown]
  - Anal ulcer [Unknown]
  - Anal cancer stage 0 [Unknown]
  - Colon cancer [Unknown]
  - Rectal ulcer [Unknown]
  - Rectal cancer [Unknown]
  - Colonic fistula [Unknown]
  - Haematochezia [Unknown]
  - Intestinal fistula [Unknown]
  - Squamous cell carcinoma [Unknown]
  - Colitis [Unknown]
  - Diverticulum intestinal [Unknown]
  - Intestinal metaplasia [Unknown]
  - Diarrhoea [Unknown]
  - Large intestine polyp [Unknown]
  - Large intestine benign neoplasm [Unknown]
  - Polyp [Unknown]
  - Intestinal mass [Unknown]
  - Anal fistula [Unknown]
  - Haemorrhoids [Unknown]
  - Diverticulum intestinal [Unknown]
